FAERS Safety Report 16476175 (Version 1)
Quarter: 2019Q2

REPORT INFORMATION
  Report Type: Spontaneous
  Country: US (occurrence: US)
  Receive Date: 20190625
  Receipt Date: 20190625
  Transmission Date: 20190711
  Serious: Yes (Other)
  Sender: FDA-Public Use
  Company Number: US-PFIZER INC-2019271543

PATIENT
  Age: 60 Year
  Sex: Female
  Weight: 68.48 kg

DRUGS (4)
  1. LIOTHYRONINE SODIUM. [Suspect]
     Active Substance: LIOTHYRONINE SODIUM
     Dosage: UNK
  2. IMVEXXY [Interacting]
     Active Substance: ESTRADIOL
     Dosage: 10 UG, 2X/WEEK BEFORE BED
     Route: 067
     Dates: start: 2019, end: 20190503
  3. IMVEXXY [Interacting]
     Active Substance: ESTRADIOL
     Dosage: 10 UG, 1X/DAY BEFORE BED
     Route: 067
     Dates: start: 201901, end: 2019
  4. SYNTHROID [Interacting]
     Active Substance: LEVOTHYROXINE SODIUM
     Dosage: UNK

REACTIONS (7)
  - Dyspnoea [Not Recovered/Not Resolved]
  - Pruritus [Not Recovered/Not Resolved]
  - Weight increased [Not Recovered/Not Resolved]
  - Fatigue [Not Recovered/Not Resolved]
  - Tracheal stenosis [Not Recovered/Not Resolved]
  - Drug interaction [Unknown]
  - Blood pressure increased [Not Recovered/Not Resolved]

NARRATIVE: CASE EVENT DATE: 2019
